FAERS Safety Report 8533051 (Version 8)
Quarter: 2013Q3

REPORT INFORMATION
  Report Type: Report from Study
  Country: AU (occurrence: AU)
  Receive Date: 20120427
  Receipt Date: 20130913
  Transmission Date: 20140515
  Serious: Yes (Other)
  Sender: FDA-Public Use
  Company Number: PHHY2012AU035268

PATIENT
  Age: 55 Year
  Sex: Female

DRUGS (5)
  1. SANDOSTATIN LAR [Suspect]
     Indication: ACROMEGALY
     Dosage: 20 MG, EVERY THREE WEEKS
     Route: 030
  2. SANDOSTATIN LAR [Suspect]
     Dosage: 20 MG, EVERY THREE WEEKS
     Route: 030
     Dates: start: 20120514
  3. SANDOSTATIN [Suspect]
     Indication: ACROMEGALY
     Dosage: 0.05 MG, AS WHEN REQUIRED
     Route: 058
  4. SANDOSTATIN [Suspect]
     Dosage: 0.05 MG, AS WHEN REQUIRED
     Route: 058
     Dates: start: 20120529
  5. DOXYCYCLIN [Concomitant]
     Indication: INFECTION
     Dosage: 100 MG BID
     Route: 048

REACTIONS (9)
  - Breast mass [Unknown]
  - Infection [Unknown]
  - Breast abscess [Recovering/Resolving]
  - Gallbladder enlargement [Unknown]
  - Abdominal pain [Unknown]
  - Malaise [Recovering/Resolving]
  - Abdominal discomfort [Unknown]
  - Nausea [Unknown]
  - Drug ineffective [Unknown]
